FAERS Safety Report 4918164-X (Version None)
Quarter: 2006Q1

REPORT INFORMATION
  Report Type: 
  Country: None (occurrence: None)
  Receive Date: 20060113
  Receipt Date: 20051019
  Transmission Date: 20060701
  Serious: No
  Sender: FDA-Public Use
  Company Number: 2005SP003587

PATIENT
  Age: 60 Year
  Sex: Male
  Weight: 72.5755 kg

DRUGS (6)
  1. LUNESTA [Suspect]
     Indication: MIDDLE INSOMNIA
     Dosage: 3 MG; HS; ORAL
     Route: 048
     Dates: start: 20051001, end: 20051001
  2. ATORVASTATIN CALCIUM [Concomitant]
  3. MELATONIN [Concomitant]
  4. PIOGLITAZONE HCL [Concomitant]
  5. HYDROCHLORIDE [Concomitant]
  6. AVANDIA [Concomitant]

REACTIONS (1)
  - DYSGEUSIA [None]
